FAERS Safety Report 23737505 (Version 1)
Quarter: 2024Q2

REPORT INFORMATION
  Report Type: Spontaneous
  Country: US (occurrence: US)
  Receive Date: 20240412
  Receipt Date: 20240412
  Transmission Date: 20240715
  Serious: No
  Sender: FDA-Public Use
  Company Number: US-009507513-2404USA004783

PATIENT
  Age: 54 Year
  Sex: Female

DRUGS (3)
  1. VERQUVO [Suspect]
     Active Substance: VERICIGUAT
     Indication: Cardiomyopathy
     Dosage: 2.5 MILLIGRAM, QD
     Route: 048
     Dates: start: 20240111
  2. ENTRESTO [Concomitant]
     Active Substance: SACUBITRIL\VALSARTAN
     Dosage: 97/103 (UNITS NOT PROVIDED), BID
  3. COREG [Concomitant]
     Active Substance: CARVEDILOL
     Dosage: 3.125 MILLIGRAM, BID

REACTIONS (1)
  - Dyspepsia [Unknown]

NARRATIVE: CASE EVENT DATE: 20240124
